FAERS Safety Report 17238022 (Version 1)
Quarter: 2020Q1

REPORT INFORMATION
  Report Type: Spontaneous
  Country: US (occurrence: US)
  Receive Date: 20200106
  Receipt Date: 20200106
  Transmission Date: 20200409
  Serious: Yes (Disabling)
  Sender: FDA-Public Use
  Company Number: US-PACIRA-201900098

PATIENT
  Age: 58 Year
  Sex: Female
  Weight: 68.8 kg

DRUGS (2)
  1. BUPIVACAINE. [Suspect]
     Active Substance: BUPIVACAINE
     Indication: NERVE BLOCK
     Dosage: 12.5 MG (5 ML) DILUTED WITH 5 ML NS
     Route: 053
     Dates: start: 20190402, end: 20190402
  2. EXPAREL [Suspect]
     Active Substance: BUPIVACAINE
     Indication: NERVE BLOCK
     Dosage: 133 MG/10 ML
     Route: 053
     Dates: start: 20190402, end: 20190402

REACTIONS (3)
  - Therapeutic product effect variable [Unknown]
  - Hypoaesthesia [Recovered/Resolved]
  - Sensory disturbance [Unknown]

NARRATIVE: CASE EVENT DATE: 20190404
